FAERS Safety Report 8098586-1 (Version None)
Quarter: 2012Q1

REPORT INFORMATION
  Report Type: 
  Country: None (occurrence: None)
  Receive Date: 20120129
  Receipt Date: 20111022
  Transmission Date: 20120608
  Serious: No
  Sender: FDA-Public Use
  Company Number: US-ABBOTT-11P-163-0867580-00

PATIENT
  Age: 53 Year
  Sex: Female

DRUGS (4)
  1. HUMIRA [Suspect]
  2. CORTISONE ACETATE [Concomitant]
     Indication: PRODUCT USED FOR UNKNOWN INDICATION
     Dosage: QUARTERLY BASIS/YEAR
  3. HUMIRA [Suspect]
     Indication: PSORIATIC ARTHROPATHY
     Dates: start: 20090101, end: 20110401
  4. HUMIRA [Suspect]
     Indication: PSORIATIC ARTHROPATHY
     Dates: start: 20110401

REACTIONS (11)
  - DEPRESSION [None]
  - VITAMIN D DECREASED [None]
  - RHINORRHOEA [None]
  - PSORIASIS [None]
  - ALOPECIA [None]
  - VAGINAL HAEMORRHAGE [None]
  - DRUG DISPENSING ERROR [None]
  - DRUG EFFECT DECREASED [None]
  - ARTHRALGIA [None]
  - BONE SCAN ABNORMAL [None]
  - INJECTION SITE PAIN [None]
